FAERS Safety Report 24433423 (Version 2)
Quarter: 2024Q4

REPORT INFORMATION
  Report Type: Report from Study
  Country: US (occurrence: US)
  Receive Date: 20241014
  Receipt Date: 20241016
  Transmission Date: 20250115
  Serious: No
  Sender: BRISTOL-MYERS SQUIBB COMPANY
  Company Number: US-BRISTOL-MYERS SQUIBB COMPANY-2024-161275

PATIENT
  Age: 79 Year
  Sex: Female
  Weight: 65.77 kg

DRUGS (2)
  1. ELIQUIS [Suspect]
     Active Substance: APIXABAN
     Indication: Pulmonary embolism
     Route: 048
     Dates: start: 202409
  2. ELIQUIS [Suspect]
     Active Substance: APIXABAN
     Route: 048
     Dates: start: 202410

REACTIONS (7)
  - Rash [Unknown]
  - Urticaria [Unknown]
  - Treatment noncompliance [Unknown]
  - Hypoacusis [Unknown]
  - Visual impairment [Unknown]
  - Anxiety [Unknown]
  - Memory impairment [Unknown]

NARRATIVE: CASE EVENT DATE: 20240101
